FAERS Safety Report 9823386 (Version 1)
Quarter: 2014Q1

REPORT INFORMATION
  Report Type: Spontaneous
  Country: US (occurrence: US)
  Receive Date: 20140116
  Receipt Date: 20140116
  Transmission Date: 20141002
  Serious: Yes (Hospitalization)
  Sender: FDA-Public Use
  Company Number: CHPA2014US000930

PATIENT
  Age: 87 Year
  Sex: Male

DRUGS (3)
  1. PREVACID 24HR 15MG [Suspect]
     Indication: DYSPEPSIA
     Dosage: 15-30 MG, QD
     Route: 048
  2. PREVACID 24HR 15MG [Suspect]
     Indication: GASTROOESOPHAGEAL REFLUX DISEASE
  3. PREVACID 24HR 15MG [Suspect]
     Indication: OFF LABEL USE

REACTIONS (6)
  - Liver disorder [Unknown]
  - Fall [Unknown]
  - Dyspepsia [Not Recovered/Not Resolved]
  - Vomiting [Not Recovered/Not Resolved]
  - Drug ineffective for unapproved indication [Unknown]
  - Incorrect dose administered [Unknown]
